FAERS Safety Report 12804191 (Version 1)
Quarter: 2016Q4

REPORT INFORMATION
  Report Type: Spontaneous
  Country: US (occurrence: US)
  Receive Date: 20161003
  Receipt Date: 20161003
  Transmission Date: 20170207
  Serious: No
  Sender: FDA-Public Use
  Company Number: US-ASTRAZENECA-2007BM01334

PATIENT
  Age: 44 Year
  Sex: Female
  Weight: 99.8 kg

DRUGS (15)
  1. HUMULIN R [Concomitant]
     Active Substance: INSULIN HUMAN
     Indication: DIABETES MELLITUS
     Dosage: 5 IU, QD
     Route: 058
     Dates: start: 2007
  2. UNSPECIFIED [Concomitant]
     Active Substance: UNSPECIFIED INGREDIENT
     Indication: DIURETIC THERAPY
  3. EXENATID [Concomitant]
  4. CIPRO [Concomitant]
     Active Substance: CIPROFLOXACIN HYDROCHLORIDE
     Indication: FUNCTIONAL GASTROINTESTINAL DISORDER
     Dates: end: 201001
  5. GLIPIZIDE. [Concomitant]
     Active Substance: GLIPIZIDE
     Indication: DIABETES MELLITUS
     Dosage: 10 MG, TID
     Route: 048
     Dates: start: 2001
  6. ZITHROMAX [Concomitant]
     Active Substance: AZITHROMYCIN DIHYDRATE
     Indication: SINUSITIS
  7. UNSPECIFIED [Concomitant]
     Active Substance: UNSPECIFIED INGREDIENT
     Indication: HYPERTENSION
  8. TEMAZEPAM. [Concomitant]
     Active Substance: TEMAZEPAM
     Indication: INSOMNIA
     Dosage: UNK UNK, PRN AS REQUIRED
     Route: 048
     Dates: start: 200703
  9. ACCURETIC [Concomitant]
     Active Substance: HYDROCHLOROTHIAZIDE\QUINAPRIL HYDROCHLORIDE
     Dosage: UNK UNK, QD
     Route: 048
  10. BYETTA [Suspect]
     Active Substance: EXENATIDE
     Indication: DIABETES MELLITUS
     Route: 058
     Dates: start: 2007, end: 20091231
  11. METFORMIN [Concomitant]
     Active Substance: METFORMIN HYDROCHLORIDE
     Indication: DIABETES MELLITUS
     Dosage: 1000 MG, BID
     Route: 048
     Dates: start: 2001
  12. PHENERGAN [Concomitant]
     Active Substance: PROMETHAZINE HYDROCHLORIDE
  13. BYETTA [Suspect]
     Active Substance: EXENATIDE
     Indication: DIABETES MELLITUS
     Route: 058
     Dates: start: 2007, end: 2007
  14. BYETTA [Suspect]
     Active Substance: EXENATIDE
     Indication: DIABETES MELLITUS
     Route: 058
     Dates: start: 201001
  15. LIPITOR [Concomitant]
     Active Substance: ATORVASTATIN CALCIUM
     Dosage: UNK

REACTIONS (17)
  - Stress [Unknown]
  - Weight increased [Recovered/Resolved]
  - Insomnia [Not Recovered/Not Resolved]
  - Glycosylated haemoglobin increased [Unknown]
  - Sinusitis [Unknown]
  - Gingival swelling [Unknown]
  - Nausea [Recovering/Resolving]
  - Ear pain [Unknown]
  - Ligament sprain [Recovered/Resolved]
  - Pain in extremity [Not Recovered/Not Resolved]
  - Gastrointestinal infection [Unknown]
  - Weight decreased [Unknown]
  - Therapeutic response unexpected [Unknown]
  - Blood glucose increased [Not Recovered/Not Resolved]
  - Nasopharyngitis [Unknown]
  - Toothache [Unknown]
  - Abdominal pain upper [Unknown]

NARRATIVE: CASE EVENT DATE: 2007
